FAERS Safety Report 5484727-9 (Version None)
Quarter: 2007Q4

REPORT INFORMATION
  Report Type: 
  Country: None (occurrence: None)
  Receive Date: 20071010
  Receipt Date: 20071001
  Transmission Date: 20080405
  Serious: Yes (Hospitalization)
  Sender: FDA-Public Use
  Company Number: CLOF-10649

PATIENT
  Sex: Female

DRUGS (1)
  1. CLOFARABINE. MFR: GENZYME [Suspect]
     Indication: ACCIDENTAL EXPOSURE

REACTIONS (8)
  - ACCIDENTAL EXPOSURE [None]
  - ANXIETY [None]
  - CHEMICAL EYE INJURY [None]
  - DYSPNOEA [None]
  - HYPERSENSITIVITY [None]
  - NAUSEA [None]
  - RASH [None]
  - TACHYCARDIA [None]
